FAERS Safety Report 9372034 (Version 1)
Quarter: 2013Q2

REPORT INFORMATION
  Report Type: Report from Study
  Country: US (occurrence: US)
  Receive Date: 20130627
  Receipt Date: 20130627
  Transmission Date: 20140414
  Serious: Yes (Other)
  Sender: FDA-Public Use
  Company Number: US-MYLANLABS-2012S1013158

PATIENT
  Age: 57 Year
  Sex: Female
  Weight: 63.96 kg

DRUGS (6)
  1. CLOZAPINE TABLETS [Suspect]
     Indication: SCHIZOAFFECTIVE DISORDER
     Route: 048
     Dates: end: 20120627
  2. CLOZAPINE TABLETS [Suspect]
     Indication: SCHIZOAFFECTIVE DISORDER
     Route: 048
     Dates: start: 20110719, end: 20120627
  3. LAMICTAL [Concomitant]
     Dates: start: 2011
  4. PAXIL [Concomitant]
     Dates: start: 2011
  5. KLONOPIN [Concomitant]
     Dates: start: 2011
  6. XANAX [Concomitant]
     Dates: start: 2011

REACTIONS (2)
  - Granulocytopenia [Not Recovered/Not Resolved]
  - Leukopenia [Recovered/Resolved]
